FAERS Safety Report 5958229-7 (Version None)
Quarter: 2008Q4

REPORT INFORMATION
  Report Type: 
  Country: None (occurrence: None)
  Receive Date: 20081119
  Receipt Date: 20081119
  Transmission Date: 20090506
  Serious: Yes (Death)
  Sender: FDA-Public Use
  Company Number: PR-ABBOTT-08P-131-0486977-00

PATIENT
  Sex: Female

DRUGS (4)
  1. HUMIRA [Suspect]
     Indication: RHEUMATOID ARTHRITIS
     Route: 058
     Dates: start: 20060601, end: 20081001
  2. PANTOPRAZOLE SODIUM [Concomitant]
     Indication: GASTROOESOPHAGEAL REFLUX DISEASE
     Route: 048
     Dates: end: 20081030
  3. ANTI-DIABETIC AGENT [Concomitant]
     Indication: DIABETES MELLITUS
     Route: 048
     Dates: end: 20081030
  4. LOTREL [Concomitant]
     Indication: HYPERTENSION
     Route: 048
     Dates: end: 20081030

REACTIONS (6)
  - DIARRHOEA [None]
  - HYPOTENSION [None]
  - PANCREATIC INSUFFICIENCY [None]
  - PHLEBITIS [None]
  - RENAL FAILURE [None]
  - SEPSIS [None]
